FAERS Safety Report 7761238-9 (Version None)
Quarter: 2011Q3

REPORT INFORMATION
  Report Type: 
  Country: None (occurrence: None)
  Receive Date: 20110920
  Receipt Date: 20110908
  Transmission Date: 20111222
  Serious: Yes (Hospitalization)
  Sender: FDA-Public Use
  Company Number: CA-JNJFOC-20110904847

PATIENT
  Sex: Male
  Weight: 30 kg

DRUGS (3)
  1. REMICADE [Suspect]
     Route: 042
     Dates: start: 20100101
  2. METHOTREXATE [Concomitant]
     Route: 065
  3. REMICADE [Suspect]
     Indication: CROHN'S DISEASE
     Route: 042
     Dates: start: 20110908

REACTIONS (1)
  - GASTROENTERITIS VIRAL [None]
